FAERS Safety Report 9429104 (Version 2)
Quarter: 2013Q3

REPORT INFORMATION
  Report Type: Report from Study
  Country: US (occurrence: US)
  Receive Date: 20130730
  Receipt Date: 20130731
  Transmission Date: 20140515
  Serious: Yes (Other)
  Sender: FDA-Public Use
  Company Number: US-ABBOTT-13P-163-1087228-00

PATIENT
  Age: 61 Year
  Sex: Female

DRUGS (13)
  1. HUMIRA [Suspect]
     Indication: RHEUMATOID ARTHRITIS
     Dates: start: 20130208, end: 20130719
  2. METHOTREXATE [Concomitant]
     Indication: RHEUMATOID ARTHRITIS
     Dosage: 8 TABS EVERY OTHER WEEK
  3. ATORVASTATIN [Concomitant]
     Indication: BLOOD CHOLESTEROL
  4. WARFARIN [Concomitant]
     Indication: THROMBOSIS
  5. WARFARIN [Concomitant]
  6. CETIRIZINE HCL [Concomitant]
     Indication: HYPERSENSITIVITY
     Dosage: DAILY
  7. OXYCODONE [Concomitant]
     Indication: PAIN
     Dosage: 5/325MG, EVERY 8 HOURS
  8. FUROSEMIDE [Concomitant]
     Indication: OEDEMA
  9. AMLODIPINE/BENAZEPRIL [Concomitant]
     Indication: BLOOD PRESSURE
     Dosage: 5 TO 20 MG DAILY
  10. LYRICA [Concomitant]
     Indication: FIBROMYALGIA
  11. NAPROSYN [Concomitant]
     Indication: PAIN
  12. MULTIVITAMINS [Concomitant]
     Indication: PRODUCT USED FOR UNKNOWN INDICATION
     Dosage: DAILY
  13. RECLAST [Concomitant]
     Indication: OSTEOPENIA
     Route: 050

REACTIONS (22)
  - Fistula [Not Recovered/Not Resolved]
  - Haemorrhoids [Unknown]
  - Oral pain [Not Recovered/Not Resolved]
  - Alopecia [Not Recovered/Not Resolved]
  - Melaena [Not Recovered/Not Resolved]
  - Contusion [Not Recovered/Not Resolved]
  - Injection site pain [Not Recovered/Not Resolved]
  - Arthropod sting [Not Recovered/Not Resolved]
  - Contusion [Not Recovered/Not Resolved]
  - Nodule [Not Recovered/Not Resolved]
  - Contusion [Not Recovered/Not Resolved]
  - Nodule [Not Recovered/Not Resolved]
  - Drug ineffective [Not Recovered/Not Resolved]
  - Pain in extremity [Not Recovered/Not Resolved]
  - Balance disorder [Not Recovered/Not Resolved]
  - Back pain [Not Recovered/Not Resolved]
  - Osteoporosis [Not Recovered/Not Resolved]
  - Stomatitis [Not Recovered/Not Resolved]
  - Rash [Not Recovered/Not Resolved]
  - Skin lesion [Not Recovered/Not Resolved]
  - Skin haemorrhage [Not Recovered/Not Resolved]
  - Skin disorder [Not Recovered/Not Resolved]
